FAERS Safety Report 15292936 (Version 1)
Quarter: 2018Q3

REPORT INFORMATION
  Report Type: Spontaneous
  Country: US (occurrence: US)
  Receive Date: 20180806
  Receipt Date: 20180806
  Transmission Date: 20181010
  Serious: No
  Sender: FDA-Public Use
  Company Number: None

PATIENT
  Age: 72 Year
  Sex: Female
  Weight: 66.15 kg

DRUGS (6)
  1. TART CHERRY JUICE [Concomitant]
  2. CALCIUM [Concomitant]
     Active Substance: CALCIUM
  3. LOW DOSE ASPRIN [Concomitant]
     Active Substance: ASPIRIN
  4. GABAPENTIN 300MG CAP [Suspect]
     Active Substance: GABAPENTIN
     Indication: NEURALGIA
     Dosage: ?          QUANTITY:4 CAPSULE(S);?
     Route: 048
     Dates: start: 20180520, end: 20180720
  5. PROBIOTIC [Concomitant]
     Active Substance: PROBIOTICS NOS
  6. PRIMIDONE. [Concomitant]
     Active Substance: PRIMIDONE

REACTIONS (1)
  - Pruritus [None]

NARRATIVE: CASE EVENT DATE: 20180720
